FAERS Safety Report 21689538 (Version 1)
Quarter: 2022Q4

REPORT INFORMATION
  Report Type: Spontaneous
  Country: FR (occurrence: FR)
  Receive Date: 20221206
  Receipt Date: 20221206
  Transmission Date: 20230113
  Serious: Yes (Other)
  Sender: FDA-Public Use
  Company Number: FR-SA-2022SA488050

PATIENT
  Age: 66 Year
  Sex: Male

DRUGS (1)
  1. CLOPIDOGREL BISULFATE [Suspect]
     Active Substance: CLOPIDOGREL BISULFATE
     Indication: Coronary arterial stent insertion
     Dosage: UNK

REACTIONS (4)
  - Paraplegia [Recovering/Resolving]
  - Spinal cord haematoma [Recovering/Resolving]
  - Subarachnoid haematoma [Recovering/Resolving]
  - Subdural haematoma [Recovering/Resolving]
